FAERS Safety Report 8975684 (Version 1)
Quarter: 2012Q4

REPORT INFORMATION
  Report Type: 
  Country: US (occurrence: US)
  Receive Date: 20121219
  Receipt Date: 20121219
  Transmission Date: 20130627
  Serious: No
  Sender: FDA-Public Use
  Company Number: US-AMGEN-USASP2012067580

PATIENT
  Age: 65 Year
  Sex: Female
  Weight: 76.19 kg

DRUGS (2)
  1. PROLIA [Suspect]
     Indication: OSTEOPOROSIS
     Dosage: UNK UNK, q6mo
     Dates: start: 20120425, end: 20120425
  2. ZOCOR [Concomitant]
     Dosage: 20 mg, qd
     Route: 048
     Dates: end: 20121009

REACTIONS (6)
  - Bone pain [Not Recovered/Not Resolved]
  - Blood glucose decreased [Not Recovered/Not Resolved]
  - Oedema peripheral [Not Recovered/Not Resolved]
  - Myalgia [Not Recovered/Not Resolved]
  - Pain [Not Recovered/Not Resolved]
  - Pain in extremity [Not Recovered/Not Resolved]
